FAERS Safety Report 7864492-8 (Version None)
Quarter: 2011Q4

REPORT INFORMATION
  Report Type: 
  Country: None (occurrence: None)
  Receive Date: 20111028
  Receipt Date: 20110908
  Transmission Date: 20120403
  Serious: Yes (Other)
  Sender: FDA-Public Use
  Company Number: ES-CEPHALON-2011005515

PATIENT
  Age: 56 Year
  Sex: Female

DRUGS (3)
  1. ACTIQ [Suspect]
     Route: 002
     Dates: start: 20100101
  2. ACTIQ [Suspect]
     Indication: BACK PAIN
     Route: 002
     Dates: start: 20070801
  3. ACTIQ [Suspect]
     Route: 002
     Dates: start: 20090101

REACTIONS (2)
  - DRUG PRESCRIBING ERROR [None]
  - DRUG ABUSE [None]
